FAERS Safety Report 8269919-8 (Version None)
Quarter: 2012Q2

REPORT INFORMATION
  Report Type: 
  Country: None (occurrence: None)
  Receive Date: 20120410
  Receipt Date: 20120405
  Transmission Date: 20120825
  Serious: No
  Sender: FDA-Public Use
  Company Number: US-PFIZER INC-2012086691

PATIENT
  Sex: Female
  Weight: 60.771 kg

DRUGS (2)
  1. PREMARIN [Suspect]
     Indication: VULVOVAGINAL DRYNESS
     Dosage: 0.625 MG, THREE TIMES A MONTH
     Route: 067
     Dates: start: 20060101
  2. PREMARIN [Suspect]
     Dosage: UNK, AS NEEDED
     Route: 067
     Dates: start: 20120404

REACTIONS (4)
  - DRUG INEFFECTIVE [None]
  - HYPERHIDROSIS [None]
  - NAUSEA [None]
  - VULVOVAGINAL DRYNESS [None]
